FAERS Safety Report 10243190 (Version 1)
Quarter: 2014Q2

REPORT INFORMATION
  Report Type: Spontaneous
  Country: CH (occurrence: CH)
  Receive Date: 20140618
  Receipt Date: 20140618
  Transmission Date: 20141212
  Serious: Yes (Life-Threatening, Hospitalization, Other)
  Sender: FDA-Public Use
  Company Number: CH-AMGEN-CHESP2014044029

PATIENT
  Age: 59 Year
  Sex: Female

DRUGS (6)
  1. NEUPOGEN [Suspect]
     Indication: AGRANULOCYTOSIS
     Dosage: 300 MIU 1 PER 1 TOTAL
     Route: 041
     Dates: start: 20140212, end: 20140212
  2. TAXOTERE [Suspect]
     Indication: BREAST CANCER
     Dosage: 125 MG, 1 PER 1 TOTAL
     Route: 041
     Dates: start: 20140203, end: 20140203
  3. CYCLOPHOSPHAMIDE [Suspect]
     Indication: BREAST CANCER
     Dosage: 1008 MG, 1 PER 1 TOTAL
     Route: 041
     Dates: start: 20140203, end: 20140203
  4. TAVANIC [Concomitant]
     Indication: PNEUMONIA BACTERIAL
     Dosage: 500 MG, 1 PER 1 DAY
     Route: 048
     Dates: start: 20140212, end: 20140221
  5. TAZOBAC [Concomitant]
     Indication: PNEUMONIA BACTERIAL
     Dosage: 4.5 G, 1 PER 3 DAY
     Route: 041
     Dates: start: 20140212, end: 20140221
  6. TAMIFLU [Concomitant]
     Dosage: UNK
     Route: 048
     Dates: start: 20140212

REACTIONS (2)
  - Acute respiratory distress syndrome [Recovered/Resolved]
  - Agranulocytosis [Recovered/Resolved]
